FAERS Safety Report 5524273-7 (Version None)
Quarter: 2007Q4

REPORT INFORMATION
  Report Type: 
  Country: None (occurrence: None)
  Receive Date: 20071121
  Receipt Date: 20071018
  Transmission Date: 20080405
  Serious: Yes (Hospitalization, Other)
  Sender: FDA-Public Use
  Company Number: US-PFIZER INC-2007090552

PATIENT
  Sex: Female
  Weight: 90.7 kg

DRUGS (8)
  1. CHANTIX [Suspect]
     Indication: SMOKING CESSATION THERAPY
     Route: 048
  2. ATENOLOL [Concomitant]
  3. DIOVAN [Concomitant]
  4. GLIMEPIRIDE [Concomitant]
  5. METFORMIN HCL [Concomitant]
  6. LYRICA [Concomitant]
  7. PERCOCET [Concomitant]
     Dosage: TEXT:AS NEEDED
  8. VYTORIN [Concomitant]

REACTIONS (5)
  - DELIRIUM [None]
  - HAEMOPTYSIS [None]
  - PLEURISY [None]
  - PNEUMONIA [None]
  - PYREXIA [None]
